FAERS Safety Report 5056938-8 (Version None)
Quarter: 2006Q2

REPORT INFORMATION
  Report Type: 
  Country: None (occurrence: None)
  Receive Date: 20060622
  Receipt Date: 20050816
  Transmission Date: 20061013
  Serious: Yes (Hospitalization)
  Sender: FDA-Public Use
  Company Number: US-JNJFOC-20050506335

PATIENT
  Age: 70 Year
  Sex: Female
  Weight: 69.4003 kg

DRUGS (9)
  1. FENTANYL TRANSDERMAL SYSTEM [Suspect]
     Indication: PAIN
     Dosage: 100 UG/HR, 1 IN 72 HOUR, TRANSDERMAL
     Route: 062
  2. COREQ (CARVEDILOL) [Concomitant]
  3. PREMARIN [Concomitant]
  4. K-DUR 10 [Concomitant]
  5. SYNTHROID [Concomitant]
  6. LASIX [Concomitant]
  7. XANAX [Concomitant]
  8. PROZAC [Concomitant]
  9. HYDROCODONE (HYDROCODONE) [Concomitant]

REACTIONS (2)
  - FALL [None]
  - SKIN LACERATION [None]
